FAERS Safety Report 10098558 (Version 1)
Quarter: 2014Q2

REPORT INFORMATION
  Report Type: Spontaneous
  Country: US (occurrence: None)
  Receive Date: 20140422
  Receipt Date: 20140422
  Transmission Date: 20141212
  Serious: Yes (Hospitalization)
  Sender: FDA-Public Use
  Company Number: None

PATIENT
  Age: 47 Year
  Sex: Female
  Weight: 50.35 kg

DRUGS (17)
  1. CETUXIMAB [Suspect]
     Indication: SQUAMOUS CELL CARCINOMA OF HEAD AND NECK
     Route: 042
     Dates: start: 20130701, end: 20140407
  2. CETUXIMAB [Suspect]
     Indication: METASTATIC NEOPLASM
     Route: 042
     Dates: start: 20130701, end: 20140407
  3. PAZOPANIB [Suspect]
     Indication: SQUAMOUS CELL CARCINOMA OF HEAD AND NECK
     Route: 048
     Dates: start: 20130701, end: 20140417
  4. PAZOPANIB [Suspect]
     Indication: METASTATIC NEOPLASM
     Route: 048
     Dates: start: 20130701, end: 20140417
  5. CHLORHEXIDINE GLUCONATE [Concomitant]
  6. CLINDAMYCIN PHOSPHATE [Concomitant]
  7. HYDROCODONE-ACETAMINOPHEN [Concomitant]
  8. HYDROCORTISONE [Concomitant]
  9. LIDOCAINE-PRILOCAINE [Concomitant]
  10. LISINOPRIL [Concomitant]
  11. METHYLPREDNISONE [Concomitant]
  12. METRONIDAZOLE [Concomitant]
  13. MORPHINE SULFATE [Concomitant]
  14. PHOS-NAK [Concomitant]
  15. PREDNISONE [Suspect]
  16. PROCHLORPERAZINE MALEATE [Suspect]
  17. TRANSDERM-SCOP [Concomitant]

REACTIONS (2)
  - Tracheal haemorrhage [None]
  - Post procedural haemorrhage [None]
